FAERS Safety Report 9270981 (Version 1)
Quarter: 2013Q2

REPORT INFORMATION
  Report Type: Spontaneous
  Country: US (occurrence: US)
  Receive Date: 20130506
  Receipt Date: 20130506
  Transmission Date: 20140414
  Serious: No
  Sender: FDA-Public Use
  Company Number: US-B.I. PHARMACEUTICALS,INC./RIDGEFIELD-2013-BI-12108BP

PATIENT
  Age: 68 Year
  Sex: Male
  Weight: 126 kg

DRUGS (4)
  1. SPIRIVA [Suspect]
     Dosage: 18 MCG
     Route: 055
     Dates: start: 20130425
  2. GLIMEPIRIDE [Concomitant]
     Dosage: 4 MG
     Route: 048
  3. OMEPRAZOLE [Concomitant]
  4. DOXAZOSIN [Concomitant]
     Dosage: 4 MG
     Route: 048

REACTIONS (2)
  - Dyspnoea [Not Recovered/Not Resolved]
  - Palpitations [Not Recovered/Not Resolved]
